FAERS Safety Report 25607514 (Version 3)
Quarter: 2025Q3

REPORT INFORMATION
  Report Type: Spontaneous
  Country: US (occurrence: US)
  Receive Date: 20250725
  Receipt Date: 20250829
  Transmission Date: 20251021
  Serious: Yes (Hospitalization)
  Sender: FERRING
  Company Number: US-FERRINGPH-2025FE03930

PATIENT

DRUGS (15)
  1. REBYOTA [Suspect]
     Active Substance: DONOR HUMAN STOOL
     Indication: Clostridium difficile infection
     Dosage: 150 ML, ONCE/SINGLE
     Route: 054
     Dates: start: 20250711, end: 20250711
  2. VOWST [Suspect]
     Active Substance: DONOR HUMAN STOOL SPORES (ETHANOL TREATED)
     Indication: Clostridium difficile colitis
     Route: 065
     Dates: start: 20250711
  3. VOWST [Suspect]
     Active Substance: DONOR HUMAN STOOL SPORES (ETHANOL TREATED)
     Route: 065
     Dates: start: 202403
  4. IMURAN [Concomitant]
     Active Substance: AZATHIOPRINE
     Indication: Product used for unknown indication
     Route: 065
  5. JANUVIA [Concomitant]
     Active Substance: SITAGLIPTIN PHOSPHATE
     Indication: Type 2 diabetes mellitus
     Dosage: 50 MG, 1 TIME DAILY
     Route: 048
     Dates: start: 20240117
  6. NORVASC [Concomitant]
     Active Substance: AMLODIPINE BESYLATE
     Indication: Pulmonary hypertension
     Dosage: 10 MG, DAILY
     Route: 048
     Dates: start: 20241018
  7. TOPROL XL [Concomitant]
     Active Substance: METOPROLOL SUCCINATE
     Indication: Pulmonary hypertension
     Dosage: 50 MG, DAILY
     Route: 048
     Dates: start: 20250703
  8. PHOSLO [Concomitant]
     Active Substance: CALCIUM ACETATE
     Dosage: 1334 MG, 3 TIMES DAILY (WITH MEALS)
     Route: 048
     Dates: start: 20241218
  9. CALCIUM CARBONATE [Concomitant]
     Active Substance: CALCIUM CARBONATE
     Dosage: 400 MG, DAILY
     Route: 065
  10. PEPCID [Concomitant]
     Active Substance: FAMOTIDINE
     Dosage: 40 MG, DAILY
     Route: 065
     Dates: start: 20250522
  11. DIALYVITE [Concomitant]
     Active Substance: ASCORBIC ACID\BIOTIN\CALCIUM PANTOTHENATE\COBALAMIN\FOLIC ACID\NIACINAMIDE\PYRIDOXINE HYDROCHLORIDE\
     Dosage: 1 DOSAGE FORM, DAILY
     Route: 048
     Dates: start: 20250221
  12. COLCHICINE [Concomitant]
     Active Substance: COLCHICINE
     Route: 048
     Dates: start: 20240827
  13. DELTASONE [Concomitant]
     Active Substance: PREDNISONE
     Dosage: 5 MG, DAILY
     Route: 048
     Dates: start: 20241225
  14. MEPRON [Concomitant]
     Active Substance: ATOVAQUONE
     Indication: Respiratory failure
     Route: 065
  15. ZOVIRAX [Concomitant]
     Active Substance: ACYCLOVIR
     Indication: Respiratory failure
     Dosage: 400 MG, DAILY
     Route: 065
     Dates: start: 20240125

REACTIONS (5)
  - Bacterial sepsis [Recovering/Resolving]
  - Colitis [Recovering/Resolving]
  - Clostridium difficile infection [Recovering/Resolving]
  - Cellulitis [Unknown]
  - Diarrhoea [Recovering/Resolving]

NARRATIVE: CASE EVENT DATE: 20250717
